FAERS Safety Report 14837576 (Version 1)
Quarter: 2018Q2

REPORT INFORMATION
  Report Type: Spontaneous
  Country: GB (occurrence: GB)
  Receive Date: 20180502
  Receipt Date: 20180502
  Transmission Date: 20180711
  Serious: Yes (Other)
  Sender: FDA-Public Use
  Company Number: PHHY2018GB076193

PATIENT
  Age: 55 Year
  Sex: Male
  Weight: 68 kg

DRUGS (1)
  1. TERBINAFINE. [Suspect]
     Active Substance: TERBINAFINE
     Indication: ONYCHOMYCOSIS
     Dosage: 250 MG, QD
     Route: 048
     Dates: start: 20171111, end: 20171122

REACTIONS (3)
  - Scleral discolouration [Recovering/Resolving]
  - Chromaturia [Recovered/Resolved]
  - Tooth discolouration [Recovering/Resolving]

NARRATIVE: CASE EVENT DATE: 20171118
